FAERS Safety Report 9615812 (Version 3)
Quarter: 2013Q4

REPORT INFORMATION
  Report Type: Report from Study
  Country: AR (occurrence: AR)
  Receive Date: 20131011
  Receipt Date: 20131018
  Transmission Date: 20140711
  Serious: Yes (Hospitalization, Other)
  Sender: FDA-Public Use
  Company Number: PHHY2013AR061555

PATIENT
  Age: 31 Year
  Sex: Female
  Weight: 85 kg

DRUGS (12)
  1. SOM230 [Suspect]
     Indication: ACROMEGALY
     Dosage: 40 MG, FOR EVERY 28 DAYS
     Route: 030
     Dates: start: 20130123, end: 20130904
  2. PHENYTOIN [Suspect]
     Indication: CONVULSION
     Dosage: 300 MG, QD
     Dates: start: 2011
  3. PHENYTOIN [Suspect]
     Dosage: 300 MG, PER DAY
  4. LEVOTHYROXINE [Concomitant]
     Indication: HYPOTHYROIDISM
     Dosage: 200 MG, QD
     Dates: start: 2011
  5. EPAMIN [Concomitant]
     Indication: CONVULSION
     Dosage: 2 UNK, UNK
  6. EPAMIN [Concomitant]
     Dosage: 100 MG, TID
  7. EPAMIN [Concomitant]
     Dosage: 100 MG, BID
  8. FOLIC ACID [Concomitant]
     Dosage: 5 MG, PER DAY
  9. URSODEOXYCHOLIC ACID [Concomitant]
     Dosage: 300 MG, PER DAY
  10. CLOBAZAM [Concomitant]
     Dosage: 5 MG, PER DAY
  11. CLOBAZAM [Concomitant]
     Dosage: HALF TABLET DAILY
  12. ANTIBIOTICS [Concomitant]
     Dates: start: 20130906, end: 20130913

REACTIONS (15)
  - White blood cell count increased [Unknown]
  - Pollakiuria [Unknown]
  - Hypoglycaemia [Recovered/Resolved]
  - Convulsion [Recovered/Resolved]
  - Decreased appetite [Recovering/Resolving]
  - Nausea [Recovering/Resolving]
  - Mental impairment [Recovering/Resolving]
  - Hyponatraemia [Recovering/Resolving]
  - Cerebellar ataxia [Recovering/Resolving]
  - Toxicity to various agents [Recovering/Resolving]
  - Dizziness [Unknown]
  - Somnolence [Unknown]
  - Adrenal insufficiency [Not Recovered/Not Resolved]
  - Hyperglycaemia [Recovered/Resolved]
  - Skin infection [Recovered/Resolved]
